FAERS Safety Report 19706192 (Version 3)
Quarter: 2021Q4

REPORT INFORMATION
  Report Type: Report from Study
  Country: CA (occurrence: CA)
  Receive Date: 20210817
  Receipt Date: 20211101
  Transmission Date: 20220303
  Serious: Yes (Hospitalization, Other)
  Sender: FDA-Public Use
  Company Number: CA-JNJFOC-20210820393

PATIENT
  Age: 54 Year
  Sex: Male
  Weight: 62 kg

DRUGS (3)
  1. REMICADE [Suspect]
     Active Substance: INFLIXIMAB
     Indication: Crohn^s disease
     Route: 042
     Dates: start: 20151006
  2. REMICADE [Suspect]
     Active Substance: INFLIXIMAB
     Route: 042
     Dates: start: 20171123, end: 20210810
  3. METHOTREXATE [Concomitant]
     Active Substance: METHOTREXATE
     Indication: Product used for unknown indication
     Dosage: PO WEEKLY

REACTIONS (6)
  - Squamous cell carcinoma of skin [Unknown]
  - Constipation [Recovered/Resolved]
  - Eye pain [Unknown]
  - Vascular access complication [Recovered/Resolved]
  - Lacrimation increased [Unknown]
  - Post procedural infection [Unknown]

NARRATIVE: CASE EVENT DATE: 20210101
